FAERS Safety Report 9230209 (Version 2)
Quarter: 2016Q2

REPORT INFORMATION
  Report Type: Report from Study
  Country: US (occurrence: US)
  Receive Date: 20130415
  Receipt Date: 20160609
  Transmission Date: 20160815
  Serious: Yes (Other)
  Sender: FDA-Public Use
  Company Number: US-RANBAXY-2013US-67303

PATIENT
  Age: 14 Year
  Sex: Female

DRUGS (3)
  1. FLUOXETINE [Suspect]
     Active Substance: FLUOXETINE HYDROCHLORIDE
     Indication: OBSESSIVE-COMPULSIVE SYMPTOM
     Dosage: 1 DF, DAILY (0.38 MG/KG)
     Route: 065
  2. FLUOXETINE [Suspect]
     Active Substance: FLUOXETINE HYDROCHLORIDE
     Indication: OBSESSIVE-COMPULSIVE SYMPTOM
     Dosage: 20 MG, QD
     Route: 065
  3. FLUOXETINE [Suspect]
     Active Substance: FLUOXETINE HYDROCHLORIDE
     Indication: OBSESSIVE-COMPULSIVE SYMPTOM
     Dosage: 1 DF, QOD (GIVEN ALONGWITH A DAILY DOSE OF 20 MG FLUOXETINE)
     Route: 065

REACTIONS (2)
  - Self injurious behaviour [Unknown]
  - Suicidal ideation [Unknown]
